FAERS Safety Report 14903342 (Version 1)
Quarter: 2018Q2

REPORT INFORMATION
  Report Type: Spontaneous
  Country: US (occurrence: US)
  Receive Date: 20180516
  Receipt Date: 20180516
  Transmission Date: 20180711
  Serious: No
  Sender: FDA-Public Use
  Company Number: US-SA-2017SA136895

PATIENT
  Sex: Male

DRUGS (2)
  1. NOVOLOG [Suspect]
     Active Substance: INSULIN ASPART
     Route: 065
  2. LANTUS [Suspect]
     Active Substance: INSULIN GLARGINE
     Dosage: DOSE:72 UNIT(S)
     Route: 051

REACTIONS (7)
  - Blood glucose increased [Unknown]
  - Drug resistance [Unknown]
  - Product use issue [Unknown]
  - Regurgitation [Unknown]
  - Cognitive disorder [Unknown]
  - Pulmonary mass [Unknown]
  - Nodule [Unknown]
